FAERS Safety Report 5606692-3 (Version None)
Quarter: 2008Q1

REPORT INFORMATION
  Report Type: 
  Country: None (occurrence: None)
  Receive Date: 20080129
  Receipt Date: 20070205
  Transmission Date: 20080703
  Serious: No
  Sender: FDA-Public Use
  Company Number: A0638341A

PATIENT
  Age: 43 Year
  Sex: Male

DRUGS (6)
  1. EPIVIR [Suspect]
     Indication: HIV INFECTION
     Dosage: 150MG TWICE PER DAY
     Route: 048
  2. VIDEX [Concomitant]
  3. CRIXIVAN [Concomitant]
  4. MAXAIR [Concomitant]
  5. ZOVIRAX [Concomitant]
  6. TESTOSTERONE [Concomitant]

REACTIONS (1)
  - EYELID PTOSIS [None]
